FAERS Safety Report 23894425 (Version 5)
Quarter: 2025Q4

REPORT INFORMATION
  Report Type: Spontaneous
  Country: US (occurrence: US)
  Receive Date: 20240524
  Receipt Date: 20251224
  Transmission Date: 20260118
  Serious: Yes (Other)
  Sender: ROCHE
  Company Number: US-ROCHE-3421305

PATIENT
  Sex: Male

DRUGS (1)
  1. OCREVUS [Suspect]
     Active Substance: OCRELIZUMAB
     Indication: Multiple sclerosis
     Dosage: STRENGTH: 300MG/ 10ML
     Route: 042
     Dates: start: 202306

REACTIONS (3)
  - Drug ineffective [Unknown]
  - Asthenia [Unknown]
  - Multiple sclerosis relapse [Unknown]
